FAERS Safety Report 20193206 (Version 1)
Quarter: 2021Q4

REPORT INFORMATION
  Report Type: Spontaneous
  Country: US (occurrence: None)
  Receive Date: 20211215
  Receipt Date: 20211215
  Transmission Date: 20220303
  Serious: Yes (Life-Threatening)
  Sender: FDA-Public Use
  Company Number: None

PATIENT
  Age: 51 Year
  Sex: Female
  Weight: 79 kg

DRUGS (3)
  1. BARICITINIB [Suspect]
     Active Substance: BARICITINIB
     Indication: COVID-19
     Dates: start: 20211205, end: 20211215
  2. BARICITINIB [Concomitant]
     Active Substance: BARICITINIB
     Dates: start: 20211205, end: 20211215
  3. TAMOXIFEN [Concomitant]
     Active Substance: TAMOXIFEN
     Dates: start: 20211205, end: 20211211

REACTIONS (1)
  - Pulmonary embolism [None]

NARRATIVE: CASE EVENT DATE: 20211212
